FAERS Safety Report 6111906-X (Version None)
Quarter: 2009Q1

REPORT INFORMATION
  Report Type: 
  Country: None (occurrence: None)
  Receive Date: 20090311
  Receipt Date: 20090305
  Transmission Date: 20090719
  Serious: Yes (Disabling)
  Sender: FDA-Public Use
  Company Number: JP-AVENTIS-200910295JP

PATIENT
  Age: 88 Year
  Sex: Male
  Weight: 52 kg

DRUGS (3)
  1. AMARYL [Suspect]
     Route: 048
     Dates: start: 20090131, end: 20090131
  2. FIRSTCIN [Concomitant]
     Indication: CHOLANGITIS
     Route: 042
     Dates: start: 20090131, end: 20090201
  3. CRAVIT [Concomitant]
     Indication: CHOLANGITIS
     Route: 048
     Dates: start: 20090131, end: 20090131

REACTIONS (2)
  - HYPOGLYCAEMIC ENCEPHALOPATHY [None]
  - INTENTIONAL DRUG MISUSE [None]
